FAERS Safety Report 4794983-8 (Version None)
Quarter: 2005Q4

REPORT INFORMATION
  Report Type: 
  Country: None (occurrence: None)
  Receive Date: 20051006
  Receipt Date: 20050920
  Transmission Date: 20060501
  Serious: Yes (Hospitalization)
  Sender: FDA-Public Use
  Company Number: 215725

PATIENT
  Age: 66 Year
  Sex: Male
  Weight: 74 kg

DRUGS (12)
  1. AVASTIN [Suspect]
     Dosage: 370MG, Q2W, INTRAVENOUS
     Route: 042
     Dates: start: 20050513
  2. OXALIPLATIN (OXALIPLATIN) [Suspect]
     Dosage: 150MG, Q2W, INTRAVENOUS
     Route: 042
     Dates: start: 20050503
  3. FLUOROURACIL [Suspect]
     Dosage: 900MG, INTRAVENOUS
     Route: 042
     Dates: start: 20050531
  4. LEUCOVORIN CALCIUM [Suspect]
     Dosage: 35MG, INTRAVENOS
     Route: 042
     Dates: start: 20050531
  5. TRAMADOL HCL [Concomitant]
  6. MIRTAZAPINE [Concomitant]
  7. MAXOLON [Concomitant]
  8. PANADOL (ACETAMINOPHEN) [Concomitant]
  9. NAVOBAN (TROPISETRON HYDROCHLORIDE) [Concomitant]
  10. DEXAMETHASONE [Concomitant]
  11. CALCIUM (CALCIUM NOS) [Concomitant]
  12. MAGNESIUM SULFATE [Concomitant]

REACTIONS (18)
  - ACUTE MYOCARDIAL INFARCTION [None]
  - BLOOD CULTURE POSITIVE [None]
  - CATHETER RELATED INFECTION [None]
  - COLORECTAL CANCER [None]
  - DEHYDRATION [None]
  - ENTEROCOCCAL INFECTION [None]
  - GENERAL PHYSICAL HEALTH DETERIORATION [None]
  - HISTIOCYTOSIS HAEMATOPHAGIC [None]
  - HYPOTENSION [None]
  - INFECTION [None]
  - METABOLIC ACIDOSIS [None]
  - METASTASES TO BONE MARROW [None]
  - METASTASES TO CENTRAL NERVOUS SYSTEM [None]
  - NEUTROPENIC SEPSIS [None]
  - PATHOGEN RESISTANCE [None]
  - STAPHYLOCOCCAL INFECTION [None]
  - TACHYCARDIA [None]
  - THROMBOCYTOPENIA [None]
